FAERS Safety Report 5837108-X (Version None)
Quarter: 2008Q3

REPORT INFORMATION
  Report Type: 
  Country: None (occurrence: None)
  Receive Date: 20080807
  Receipt Date: 20080729
  Transmission Date: 20090109
  Serious: Yes (Death, Other)
  Sender: FDA-Public Use
  Company Number: US-MERCK-0805USA00340

PATIENT
  Age: 46 Year
  Sex: Female
  Weight: 93 kg

DRUGS (18)
  1. SINGULAIR [Suspect]
     Indication: ASTHMA
     Route: 048
  2. TRAZODONE HYDROCHLORIDE [Concomitant]
     Indication: DEPRESSION
     Route: 065
  3. DETROL [Concomitant]
     Route: 065
  4. ADVAIR DISKUS 100/50 [Concomitant]
     Indication: ASTHMA
     Route: 065
  5. LIDOCAINE [Concomitant]
     Indication: PAIN
     Route: 065
  6. DURAGESIC-100 [Concomitant]
     Indication: PAIN
     Route: 065
  7. SEROQUEL [Concomitant]
     Indication: HALLUCINATION, AUDITORY
     Route: 065
  8. SEROQUEL [Concomitant]
     Indication: DEPRESSION
     Route: 065
  9. PREVACID [Concomitant]
     Indication: GASTROOESOPHAGEAL REFLUX DISEASE
     Route: 065
  10. SOMA [Concomitant]
     Indication: PAIN
     Route: 065
  11. MAXALT [Concomitant]
     Indication: MIGRAINE
     Route: 065
  12. LOPRESSOR [Concomitant]
     Indication: BLOOD PRESSURE
     Route: 065
  13. ABILIFY [Concomitant]
     Indication: SCHIZOAFFECTIVE DISORDER
     Route: 065
  14. ALBUTEROL SULFATE [Concomitant]
     Indication: ASTHMA
     Route: 065
  15. SYNTHROID [Concomitant]
     Indication: THYROID DISORDER
     Route: 065
  16. KLONOPIN [Concomitant]
     Route: 065
  17. PROZAC [Suspect]
     Indication: DEPRESSION
     Route: 065
     Dates: start: 20050101
  18. MOBIC [Concomitant]
     Indication: PAIN
     Route: 065

REACTIONS (8)
  - BRONCHITIS [None]
  - COMPLETED SUICIDE [None]
  - CONGESTIVE CARDIOMYOPATHY [None]
  - DIABETES MELLITUS [None]
  - DRUG TOXICITY [None]
  - FUNGAL SKIN INFECTION [None]
  - MALAISE [None]
  - PULMONARY OEDEMA [None]
